FAERS Safety Report 16053751 (Version 2)
Quarter: 2019Q1

REPORT INFORMATION
  Report Type: Report from Study
  Country: US (occurrence: US)
  Receive Date: 20190308
  Receipt Date: 20190318
  Transmission Date: 20190418
  Serious: Yes (Hospitalization, Other)
  Sender: FDA-Public Use
  Company Number: US-BAYER-2019-024546

PATIENT
  Age: 31 Year
  Sex: Male

DRUGS (3)
  1. STIVARGA [Suspect]
     Active Substance: REGORAFENIB
     Indication: COLON CANCER
     Dosage: 80 MG, QD
     Route: 048
     Dates: start: 20190128, end: 2019
  2. STIVARGA [Suspect]
     Active Substance: REGORAFENIB
     Indication: COLON CANCER
     Dosage: 120 MG DAILY (21 DAYS ON AND 7 DAYS OFF)
     Route: 048
     Dates: end: 20190307
  3. STIVARGA [Suspect]
     Active Substance: REGORAFENIB
     Indication: COLON CANCER
     Dosage: 120 MG DAILY (21 DAYS ON AND 7 DAYS OFF)
     Route: 048
     Dates: start: 20190204, end: 20190216

REACTIONS (15)
  - Exercise tolerance decreased [None]
  - Nausea [None]
  - Hypokalaemia [Recovering/Resolving]
  - Vomiting [None]
  - Dermatitis acneiform [None]
  - Weight decreased [Recovering/Resolving]
  - Rectal neoplasm [None]
  - Abdominal pain [Recovering/Resolving]
  - Vomiting [None]
  - Dehydration [None]
  - Decreased appetite [Recovering/Resolving]
  - Dermatitis acneiform [None]
  - Rash pruritic [None]
  - Off label use [None]
  - Pain [None]

NARRATIVE: CASE EVENT DATE: 2019
